FAERS Safety Report 7285356-7 (Version None)
Quarter: 2011Q1

REPORT INFORMATION
  Report Type: 
  Country: None (occurrence: None)
  Receive Date: 20110210
  Receipt Date: 20110204
  Transmission Date: 20110831
  Serious: Yes (Hospitalization)
  Sender: FDA-Public Use
  Company Number: CO-ROCHE-757748

PATIENT
  Sex: Female

DRUGS (4)
  1. OMEPRAZOLE [Concomitant]
     Indication: ABDOMINAL PAIN
     Route: 048
     Dates: start: 20070701
  2. LOSARTAN POTASSIUM [Concomitant]
     Indication: HYPERTENSION
     Route: 048
     Dates: start: 20070701
  3. ACETAMINOPHEN [Concomitant]
     Indication: PAIN
     Dosage: PRN
     Route: 048
     Dates: start: 20070701
  4. CELLCEPT [Suspect]
     Route: 048
     Dates: start: 20070724

REACTIONS (1)
  - THROMBOPHLEBITIS [None]
